FAERS Safety Report 10668563 (Version 4)
Quarter: 2015Q2

REPORT INFORMATION
  Report Type: Report from Study
  Country: US (occurrence: US)
  Receive Date: 20141222
  Receipt Date: 20150501
  Transmission Date: 20150821
  Serious: Yes (Other)
  Sender: FDA-Public Use
  Company Number: US-SA-2014SA118596

PATIENT
  Age: 62 Year
  Sex: Male
  Weight: 66.67 kg

DRUGS (6)
  1. AUBAGIO [Suspect]
     Active Substance: TERIFLUNOMIDE
     Indication: MULTIPLE SCLEROSIS
     Dosage: DOSAGE CAPTURED AS PER NARRATIVE IN USPV FORM
     Route: 048
     Dates: start: 20140815
  2. AUBAGIO [Suspect]
     Active Substance: TERIFLUNOMIDE
     Indication: MULTIPLE SCLEROSIS
     Route: 048
  3. TOPAMAX [Concomitant]
     Active Substance: TOPIRAMATE
     Indication: PROPHYLAXIS
     Dates: start: 2009
  4. VITAMIN D [Concomitant]
     Active Substance: CHOLECALCIFEROL
     Dosage: STRENGTH:50000 U
     Dates: start: 2012
  5. AUBAGIO [Suspect]
     Active Substance: TERIFLUNOMIDE
     Indication: MULTIPLE SCLEROSIS
     Dosage: DOSAGE CAPTURED AS PER NARRATIVE IN USPV FORM
     Route: 048
     Dates: start: 20140815
  6. AUBAGIO [Suspect]
     Active Substance: TERIFLUNOMIDE
     Indication: MULTIPLE SCLEROSIS
     Route: 048
     Dates: end: 20141212

REACTIONS (7)
  - Psoriasis [Unknown]
  - Fatigue [Not Recovered/Not Resolved]
  - Seizure [Not Recovered/Not Resolved]
  - Ocular hyperaemia [Recovered/Resolved]
  - White blood cell count decreased [Unknown]
  - Diarrhoea [Not Recovered/Not Resolved]
  - Weight decreased [Not Recovered/Not Resolved]

NARRATIVE: CASE EVENT DATE: 2014
